FAERS Safety Report 8178967 (Version 2)
Quarter: 2015Q4

REPORT INFORMATION
  Report Type: Spontaneous
  Country: DE (occurrence: DE)
  Receive Date: 20111013
  Receipt Date: 20151001
  Transmission Date: 20160305
  Serious: Yes (Congenital Anomaly, Other)
  Sender: FDA-Public Use
  Company Number: DE-BRISTOL-MYERS SQUIBB COMPANY-16137127

PATIENT
  Sex: Female
  Weight: 1.84 kg

DRUGS (7)
  1. COUMADIN [Suspect]
     Active Substance: WARFARIN SODIUM
     Indication: PRODUCT USED FOR UNKNOWN INDICATION
     Dosage: 37.5 MG, QWK
     Route: 064
  2. DEXAMETHASONE. [Concomitant]
     Active Substance: DEXAMETHASONE
     Indication: PRODUCT USED FOR UNKNOWN INDICATION
     Dosage: UNK
     Route: 064
  3. NUVARING [Concomitant]
     Active Substance: ETHINYL ESTRADIOL\ETONOGESTREL
     Indication: PRODUCT USED FOR UNKNOWN INDICATION
     Route: 064
  4. HEPARIN [Suspect]
     Active Substance: HEPARIN SODIUM
     Indication: PRODUCT USED FOR UNKNOWN INDICATION
     Dosage: UNK
     Route: 064
  5. CEFUROXIME. [Concomitant]
     Active Substance: CEFUROXIME
     Indication: PRODUCT USED FOR UNKNOWN INDICATION
     Dosage: 4.5 G, QD
     Route: 064
  6. FOLIO [Concomitant]
     Active Substance: FOLIC ACID
     Indication: PRODUCT USED FOR UNKNOWN INDICATION
     Dosage: 0.4 MG, QD
     Route: 064
  7. ATOSIBAN [Concomitant]
     Active Substance: ATOSIBAN
     Indication: PRODUCT USED FOR UNKNOWN INDICATION
     Dosage: UNK
     Route: 064

REACTIONS (13)
  - Premature baby [Unknown]
  - Premature rupture of membranes [None]
  - Caesarean section [None]
  - Atrial septal defect [Unknown]
  - Low birth weight baby [Unknown]
  - Hypoglycaemia [Unknown]
  - Patent ductus arteriosus [Unknown]
  - Maternal drugs affecting foetus [None]
  - Hypoglycaemia neonatal [None]
  - Respiratory distress [Unknown]
  - Haemangioma [Unknown]
  - Foetal exposure during pregnancy [Unknown]
  - Neonatal respiratory distress syndrome [None]

NARRATIVE: CASE EVENT DATE: 20090225
